FAERS Safety Report 8562688-3 (Version None)
Quarter: 2012Q3

REPORT INFORMATION
  Report Type: 
  Country: None (occurrence: None)
  Receive Date: 20120802
  Receipt Date: 20120719
  Transmission Date: 20120928
  Serious: Yes (Disabling)
  Sender: FDA-Public Use
  Company Number: GB-WATSON-2012-13033

PATIENT
  Age: 69 Year
  Sex: Male

DRUGS (6)
  1. AMOXICILLIN AND CLAVULANATE POTASSIUM [Suspect]
     Indication: TOOTH INFECTION
     Dosage: 1 DF, TID TAKE FOR 5 DAYS
     Route: 065
     Dates: start: 20120416
  2. SIMVASTATIN [Concomitant]
     Indication: PRODUCT USED FOR UNKNOWN INDICATION
     Dosage: 40 MG, UNKNOWN
     Route: 065
  3. BETAHISTINE DIHYDROCHLORIDE [Concomitant]
     Indication: PRODUCT USED FOR UNKNOWN INDICATION
     Dosage: 16 MG, UNKNOWN
     Route: 065
  4. CLINDAMYCIN HYDROCHLORIDE [Suspect]
     Indication: PRODUCT USED FOR UNKNOWN INDICATION
     Dosage: UNK
     Route: 065
     Dates: start: 20120426
  5. RAMIPRIL [Concomitant]
     Indication: PRODUCT USED FOR UNKNOWN INDICATION
     Dosage: 2.5 MG, UNKNOWN
     Route: 065
  6. METRONIDAZOLE [Suspect]
     Indication: TOOTH INFECTION
     Dosage: UNK, TAKE FOR 5 DAYS
     Route: 065
     Dates: start: 20120416

REACTIONS (1)
  - HEPATITIS ACUTE [None]
